FAERS Safety Report 7216928-3 (Version None)
Quarter: 2011Q1

REPORT INFORMATION
  Report Type: 
  Country: None (occurrence: None)
  Receive Date: 20110110
  Receipt Date: 20110103
  Transmission Date: 20110831
  Serious: Yes (Other)
  Sender: FDA-Public Use
  Company Number: US-BAYER-2011-002172

PATIENT
  Sex: Female

DRUGS (6)
  1. YAZ [Suspect]
     Indication: PRODUCT USED FOR UNKNOWN INDICATION
     Dosage: UNK
     Dates: start: 20081101, end: 20090501
  2. YASMIN [Suspect]
     Indication: PRODUCT USED FOR UNKNOWN INDICATION
     Dosage: UNK
     Dates: start: 20041001, end: 20051001
  3. YASMIN [Suspect]
     Dosage: UNK
     Dates: start: 20070901, end: 20071101
  4. OCELLA [Suspect]
     Indication: PRODUCT USED FOR UNKNOWN INDICATION
     Dosage: UNK
     Dates: start: 20081101, end: 20090501
  5. YASMIN [Suspect]
     Dosage: UNK
     Dates: start: 20080601, end: 20080701
  6. YASMIN [Suspect]
     Dosage: UNK
     Dates: start: 20060101, end: 20061101

REACTIONS (5)
  - FEAR OF DEATH [None]
  - EMOTIONAL DISTRESS [None]
  - CHOLECYSTECTOMY [None]
  - NERVOUSNESS [None]
  - DEPRESSION [None]
